FAERS Safety Report 10069708 (Version 1)
Quarter: 2014Q2

REPORT INFORMATION
  Report Type: Spontaneous
  Country: US (occurrence: None)
  Receive Date: 20140409
  Receipt Date: 20140409
  Transmission Date: 20141212
  Serious: Yes (Other)
  Sender: FDA-Public Use
  Company Number: None

PATIENT
  Age: 10 Year
  Sex: Male
  Weight: 27.67 kg

DRUGS (1)
  1. MONTELUKAST 5MG [Suspect]
     Indication: HYPERSENSITIVITY
     Dosage: 5MG/QD, ONCE DAILY, TAKEN BY MOUTH
     Route: 048

REACTIONS (2)
  - Tic [None]
  - Rhinorrhoea [None]
